FAERS Safety Report 6168812-4 (Version None)
Quarter: 2009Q2

REPORT INFORMATION
  Report Type: 
  Country: None (occurrence: None)
  Receive Date: 20090424
  Receipt Date: 20090424
  Transmission Date: 20091009
  Serious: Yes (Other)
  Sender: FDA-Public Use
  Company Number: None

PATIENT
  Age: 68 Year
  Sex: Female
  Weight: 45.8133 kg

DRUGS (4)
  1. FORTEO [Suspect]
     Indication: FALL
     Dosage: 20 MCG ONCE DAILY SQ
     Route: 058
     Dates: start: 20080501, end: 20090416
  2. FORTEO [Suspect]
     Indication: INTERVERTEBRAL DISC PROTRUSION
     Dosage: 20 MCG ONCE DAILY SQ
     Route: 058
     Dates: start: 20080501, end: 20090416
  3. FORTEO [Suspect]
     Indication: OSTEOPOROSIS
     Dosage: 20 MCG ONCE DAILY SQ
     Route: 058
     Dates: start: 20080501, end: 20090416
  4. CORTICOSTEROID WITH PAIN MEDS [Suspect]
     Indication: SCIATICA
     Dosage: ONCE EPIDURAL
     Route: 008
     Dates: start: 20090415, end: 20090415

REACTIONS (2)
  - DRUG INTERACTION [None]
  - UNEVALUABLE EVENT [None]
